FAERS Safety Report 13595757 (Version 1)
Quarter: 2017Q2

REPORT INFORMATION
  Report Type: Spontaneous
  Country: US (occurrence: US)
  Receive Date: 20170531
  Receipt Date: 20170531
  Transmission Date: 20170830
  Serious: No
  Sender: FDA-Public Use
  Company Number: US-JNJFOC-20170502059

PATIENT
  Age: 66 Year
  Sex: Female
  Weight: 68.04 kg

DRUGS (1)
  1. TYLENOL EXTRA STRENGTH [Suspect]
     Active Substance: ACETAMINOPHEN
     Indication: BACK PAIN
     Dosage: 1-2 CAPLETS, AS NEEDED
     Route: 048
     Dates: start: 201704, end: 20170429

REACTIONS (6)
  - Pain [Recovering/Resolving]
  - Incorrect dose administered [Recovering/Resolving]
  - Arthralgia [Recovering/Resolving]
  - Contraindicated product administered [Recovering/Resolving]
  - Musculoskeletal pain [Recovering/Resolving]
  - Inappropriate schedule of drug administration [Recovering/Resolving]

NARRATIVE: CASE EVENT DATE: 201704
